FAERS Safety Report 9958530 (Version 1)
Quarter: 2014Q1

REPORT INFORMATION
  Report Type: Report from Study
  Country: FR (occurrence: FR)
  Receive Date: 20140305
  Receipt Date: 20140305
  Transmission Date: 20141002
  Serious: Yes (Hospitalization)
  Sender: FDA-Public Use
  Company Number: FR-BRISTOL-MYERS SQUIBB COMPANY-20370003

PATIENT
  Age: 64 Year
  Sex: Female

DRUGS (1)
  1. CETUXIMAB [Suspect]
     Indication: SQUAMOUS CELL CARCINOMA OF HEAD AND NECK
     Dosage: RECENT DOSE 08FEB12
     Route: 042
     Dates: start: 20120111, end: 20120208

REACTIONS (8)
  - Oral candidiasis [Recovering/Resolving]
  - Aphagia [Recovering/Resolving]
  - Mucosal inflammation [Recovering/Resolving]
  - Odynophagia [Recovering/Resolving]
  - Dysphagia [Recovering/Resolving]
  - Weight decreased [Recovering/Resolving]
  - Malnutrition [Recovering/Resolving]
  - Fatigue [Recovering/Resolving]
